FAERS Safety Report 6590299-8 (Version None)
Quarter: 2010Q1

REPORT INFORMATION
  Report Type: 
  Country: None (occurrence: None)
  Receive Date: 20100219
  Receipt Date: 20070522
  Transmission Date: 20100710
  Serious: Yes (Other)
  Sender: FDA-Public Use
  Company Number: PHBS2007JP02412

PATIENT
  Sex: Male
  Weight: 55 kg

DRUGS (10)
  1. GLEEVEC [Suspect]
     Indication: CHRONIC MYELOID LEUKAEMIA
     Dosage: 300 MG/DAY
     Route: 048
     Dates: start: 20070111
  2. NEORAL [Interacting]
     Indication: INTERSTITIAL LUNG DISEASE
     Dosage: 100 MG/DAY
     Route: 048
  3. NEORAL [Interacting]
     Dosage: 50 MG/DAY
     Route: 048
     Dates: start: 20070406
  4. PREDNISOLONE [Concomitant]
     Dosage: 3MG
     Route: 048
     Dates: start: 20060406
  5. NU LOTAN [Concomitant]
     Dosage: 50MG
     Route: 048
     Dates: start: 20060406
  6. HERBESSER [Concomitant]
     Dosage: 200MG
     Route: 048
     Dates: start: 20060406
  7. PANALDINE [Concomitant]
     Dosage: 200MG
     Route: 048
     Dates: start: 20060406
  8. MUCOSTA [Concomitant]
     Dosage: 300MG
     Route: 048
     Dates: start: 20060406
  9. MUCODYNE [Concomitant]
     Dosage: 750MG
     Route: 048
     Dates: start: 20060406
  10. LIPITOR [Concomitant]
     Dosage: 10MG
     Route: 048
     Dates: start: 20060406

REACTIONS (4)
  - BLOOD CREATININE INCREASED [None]
  - BLOOD UREA INCREASED [None]
  - DRUG INTERACTION [None]
  - RENAL IMPAIRMENT [None]
